FAERS Safety Report 7868865-9 (Version None)
Quarter: 2011Q4

REPORT INFORMATION
  Report Type: 
  Country: None (occurrence: None)
  Receive Date: 20111028
  Receipt Date: 20101221
  Transmission Date: 20120403
  Serious: No
  Sender: FDA-Public Use
  Company Number: US-AMGEN-USASP2010005558

PATIENT
  Age: 45 Year
  Sex: Female

DRUGS (1)
  1. ENBREL [Suspect]
     Indication: PSORIASIS
     Dosage: 50 MG, 2 TIMES/WK
     Dates: start: 20101110, end: 20101210

REACTIONS (6)
  - NAUSEA [None]
  - INJECTION SITE IRRITATION [None]
  - HEADACHE [None]
  - COUGH [None]
  - ARTHRALGIA [None]
  - FATIGUE [None]
